FAERS Safety Report 6154625-6 (Version None)
Quarter: 2009Q2

REPORT INFORMATION
  Report Type: 
  Country: None (occurrence: None)
  Receive Date: 20090414
  Receipt Date: 20090403
  Transmission Date: 20091009
  Serious: Yes (Hospitalization)
  Sender: FDA-Public Use
  Company Number: JP-BAYER-200910973BYL

PATIENT
  Age: 76 Year
  Sex: Male
  Weight: 82 kg

DRUGS (15)
  1. RIVAROXABAN OD PO OR WARFARIN OD [Suspect]
     Indication: CEREBROVASCULAR ACCIDENT PROPHYLAXIS
     Route: 048
     Dates: start: 20080502, end: 20090330
  2. RIVAROXABAN OD PO OR WARFARIN OD [Suspect]
     Route: 048
     Dates: start: 20090404
  3. ASPIRIN [Suspect]
     Indication: THROMBOSIS PROPHYLAXIS
     Dosage: TOTAL DAILY DOSE: 100 MG
     Route: 048
     Dates: start: 20000602
  4. VOGLIBOSE [Suspect]
     Indication: DIABETES MELLITUS
     Dates: start: 20060301
  5. HORDAZOL [Suspect]
     Indication: PERCUTANEOUS CORONARY INTERVENTION
     Route: 048
     Dates: start: 20080609
  6. NOVORAPID [Concomitant]
     Indication: DIABETES MELLITUS
     Route: 058
     Dates: start: 20080609
  7. NOVORAPID MIX [Concomitant]
     Indication: DIABETES MELLITUS
     Route: 058
     Dates: start: 20080606
  8. NORVASC [Concomitant]
     Indication: HYPERTENSION
     Route: 048
     Dates: start: 20080331
  9. ATELEC [Concomitant]
     Indication: HYPERTENSION
     Route: 048
     Dates: start: 20080807
  10. LANIRAPID [Concomitant]
     Indication: CARDIAC FAILURE
     Route: 048
     Dates: start: 20080202
  11. LIPITOR [Concomitant]
     Indication: HYPERLIPIDAEMIA
     Route: 048
     Dates: start: 20060704
  12. BLOPRESS [Concomitant]
     Indication: HYPERTENSION
     Route: 048
     Dates: start: 20050202
  13. NITROPEN [Concomitant]
     Indication: ANGINA PECTORIS
     Route: 060
     Dates: start: 20080201
  14. AMARYL [Concomitant]
     Indication: DIABETES MELLITUS
     Route: 048
     Dates: start: 20080301
  15. CRUDE DRUGS [Concomitant]
     Indication: DIABETIC NEUROPATHY
     Route: 048
     Dates: start: 20081225

REACTIONS (2)
  - COMPARTMENT SYNDROME [None]
  - MUSCLE HAEMORRHAGE [None]
